FAERS Safety Report 7418396-5 (Version None)
Quarter: 2011Q2

REPORT INFORMATION
  Report Type: 
  Country: None (occurrence: None)
  Receive Date: 20110415
  Receipt Date: 20110412
  Transmission Date: 20111010
  Serious: Yes (Hospitalization)
  Sender: FDA-Public Use
  Company Number: US-BRISTOL-MYERS SQUIBB COMPANY-15668684

PATIENT
  Age: 67 Year
  Sex: Female
  Weight: 83 kg

DRUGS (1)
  1. ONGLYZA [Suspect]
     Dates: start: 20110101

REACTIONS (3)
  - ABDOMINAL PAIN [None]
  - NAUSEA [None]
  - URINARY TRACT INFECTION [None]
